FAERS Safety Report 8287054-X (Version None)
Quarter: 2012Q2

REPORT INFORMATION
  Report Type: 
  Country: None (occurrence: None)
  Receive Date: 20120416
  Receipt Date: 20120402
  Transmission Date: 20120825
  Serious: Yes (Hospitalization)
  Sender: FDA-Public Use
  Company Number: US-ROCHE-1047335

PATIENT
  Sex: Male

DRUGS (13)
  1. BELATACEPT [Suspect]
     Indication: RENAL TRANSPLANT
     Route: 042
     Dates: start: 20070417
  2. TRAZODONE HCL [Concomitant]
     Dates: start: 20111006
  3. MIRALAX [Concomitant]
     Dates: start: 20110922
  4. MULTI-VITAMIN [Concomitant]
     Dates: start: 20070624
  5. METFORMIN HCL [Concomitant]
     Dates: start: 20111220
  6. METOPROLOL TARTRATE [Concomitant]
     Dates: start: 20110918
  7. ASPIRIN [Concomitant]
     Dates: start: 20110707
  8. PREDNISONE TAB [Suspect]
     Indication: RENAL TRANSPLANT
     Dates: start: 20110922
  9. INSULIN [Concomitant]
     Dates: start: 20070417
  10. NPH INSULIN [Concomitant]
     Dates: start: 20111213
  11. CIALIS [Concomitant]
     Dates: start: 20110413
  12. MYCOPHENOLATE MOFETIL (CELLCEPT) [Suspect]
     Indication: RENAL TRANSPLANT
     Dates: start: 20110919
  13. RANITIDINE [Concomitant]
     Dates: start: 20111012

REACTIONS (1)
  - PNEUMONIA ASPIRATION [None]
